FAERS Safety Report 8089267-9 (Version None)
Quarter: 2012Q1

REPORT INFORMATION
  Report Type: 
  Country: None (occurrence: None)
  Receive Date: 20120128
  Receipt Date: 20110706
  Transmission Date: 20120608
  Serious: No
  Sender: FDA-Public Use
  Company Number: US-ABBOTT-11P-163-0837698-00

PATIENT
  Age: 65 Year
  Sex: Male

DRUGS (14)
  1. LEFLUNOMIDE [Concomitant]
     Indication: PRODUCT USED FOR UNKNOWN INDICATION
     Dosage: DAILY
  2. RANITIDINE [Concomitant]
     Indication: PRODUCT USED FOR UNKNOWN INDICATION
     Dosage: DAILY
  3. KLOR-CON [Concomitant]
     Indication: EXTRASYSTOLES
  4. NEXIUM [Concomitant]
     Indication: PRODUCT USED FOR UNKNOWN INDICATION
     Dosage: DAILY
  5. TRAMADOL HCL [Concomitant]
     Indication: PAIN
     Dosage: 1 OR 2 TABLETS A DAY
  6. VICODIN [Concomitant]
     Indication: PAIN
     Dosage: 5/500MG 1 OR 2 TABLETS A DAY
  7. VITAMIN B-12 [Concomitant]
     Indication: PRODUCT USED FOR UNKNOWN INDICATION
     Dosage: SHOT MONTHLY MAYBE MORE OFTEN
  8. HUMIRA [Suspect]
  9. TRIAMTERENE AND HYDROCHLOROTHIAZIDE [Concomitant]
     Indication: PRODUCT USED FOR UNKNOWN INDICATION
     Dosage: 37.5MG/25MG DAILY
  10. VITAMINS MEGA ANTIOXIDANTS [Concomitant]
     Indication: PRODUCT USED FOR UNKNOWN INDICATION
  11. HUMIRA [Suspect]
     Indication: PSORIATIC ARTHROPATHY
     Dates: start: 20070901, end: 20100201
  12. CHELATED MINERAL [Concomitant]
     Indication: PRODUCT USED FOR UNKNOWN INDICATION
  13. ZEGERID [Concomitant]
     Indication: GASTROOESOPHAGEAL REFLUX DISEASE
  14. VITAMIN D [Concomitant]
     Indication: PRODUCT USED FOR UNKNOWN INDICATION

REACTIONS (1)
  - STAPHYLOCOCCAL INFECTION [None]
